FAERS Safety Report 4365551-7 (Version None)
Quarter: 2004Q2

REPORT INFORMATION
  Report Type: 
  Country: None (occurrence: None)
  Receive Date: 20040526
  Receipt Date: 20030604
  Transmission Date: 20050107
  Serious: Yes (Death, Other)
  Sender: FDA-Public Use
  Company Number: 12296141

PATIENT
  Age: 52 Year
  Sex: Male

DRUGS (2)
  1. CISPLATIN [Suspect]
     Indication: SMALL CELL LUNG CANCER STAGE UNSPECIFIED
     Dosage: 30 MG/M2
     Route: 042
  2. ETOPOSIDE [Suspect]
     Indication: SMALL CELL LUNG CANCER STAGE UNSPECIFIED
     Dosage: 100 MG/M2
     Route: 042

REACTIONS (3)
  - GASTROINTESTINAL HAEMORRHAGE [None]
  - LUNG CANCER METASTATIC [None]
  - TUMOUR LYSIS SYNDROME [None]
